FAERS Safety Report 5815923-6 (Version None)
Quarter: 2008Q3

REPORT INFORMATION
  Report Type: 
  Country: None (occurrence: None)
  Receive Date: 20080721
  Receipt Date: 20080707
  Transmission Date: 20090109
  Serious: Yes (Death)
  Sender: FDA-Public Use
  Company Number: CH-ROCHE-575979

PATIENT
  Age: 54 Year
  Sex: Male
  Weight: 46 kg

DRUGS (20)
  1. VALGANCICLOVIR HCL [Suspect]
     Dosage: TABLET WAS CRUSHED AND DISSOLVED IN COLD WATER BEFORE ADMINISTRATION THROUGH NASOGASTRIC TUBE.
     Route: 050
  2. HEPARIN SODIUM [Suspect]
     Indication: DRUG USE FOR UNKNOWN INDICATION
     Route: 065
  3. MYCOPHENOLATE MOFETIL [Suspect]
     Indication: DRUG USE FOR UNKNOWN INDICATION
     Route: 065
  4. NOREPINEPHRINE [Concomitant]
  5. PROPAFENONE HCL [Concomitant]
  6. SUFENTANIL CITRATE [Concomitant]
  7. PROPOFOL [Concomitant]
  8. LORAZEPAM [Concomitant]
  9. CYCLOSPORINE [Concomitant]
  10. METHYLPREDNISOLONE [Concomitant]
  11. VANCOMYCIN HCL [Concomitant]
  12. PIPERACILLIN AND TAZOBACTAM [Concomitant]
  13. ETHAMBUTOL HYDROCHLORIDE [Concomitant]
  14. AZITHROMYCIN [Concomitant]
  15. CASPOFUNGIN [Concomitant]
  16. LAMIVUDINE [Concomitant]
  17. COLISTIMETHATE SODIUM [Concomitant]
     Dosage: DRUG NAME REPORTED AS: COLISTIMETHANE.
  18. NYSTATIN [Concomitant]
  19. INSULIN [Concomitant]
  20. ESOMEPRAZOLE MAGNESIUM [Concomitant]

REACTIONS (1)
  - CARDIAC ARREST [None]
